FAERS Safety Report 7323555-6 (Version None)
Quarter: 2011Q1

REPORT INFORMATION
  Report Type: 
  Country: None (occurrence: None)
  Receive Date: 20110301
  Receipt Date: 20110216
  Transmission Date: 20110831
  Serious: Yes (Other)
  Sender: FDA-Public Use
  Company Number: CA-ELI_LILLY_AND_COMPANY-CA201102004730

PATIENT
  Age: 45 Year
  Sex: Female

DRUGS (3)
  1. MORPHINE [Concomitant]
  2. CYMBALTA [Suspect]
     Indication: BACK PAIN
     Dosage: 60 MG, UNK
  3. CYMBALTA [Suspect]
     Dosage: 30 MG, UNK

REACTIONS (2)
  - ABNORMAL DREAMS [None]
  - SURGERY [None]
